FAERS Safety Report 7036083-2 (Version None)
Quarter: 2010Q4

REPORT INFORMATION
  Report Type: 
  Country: None (occurrence: None)
  Receive Date: 20101008
  Receipt Date: 20090817
  Transmission Date: 20110411
  Serious: No
  Sender: FDA-Public Use
  Company Number: US-BRISTOL-MYERS SQUIBB COMPANY-14690192

PATIENT
  Age: 68 Year
  Sex: Female
  Weight: 63 kg

DRUGS (4)
  1. AVAPRO [Suspect]
     Indication: HYPERTENSION
     Route: 048
     Dates: start: 20090610, end: 20090803
  2. NOVOLOG [Concomitant]
  3. LANTUS [Concomitant]
  4. NEXIUM [Concomitant]

REACTIONS (1)
  - DYSGEUSIA [None]
